FAERS Safety Report 9741914 (Version 2)
Quarter: 2014Q1

REPORT INFORMATION
  Report Type: Spontaneous
  Country: GB (occurrence: GB)
  Receive Date: 20131210
  Receipt Date: 20140324
  Transmission Date: 20141002
  Serious: Yes (Life-Threatening, Hospitalization)
  Sender: FDA-Public Use
  Company Number: GB-JNJFOC-20131203180

PATIENT
  Age: 96 Year
  Sex: Female

DRUGS (11)
  1. XARELTO [Suspect]
     Indication: EMBOLISM VENOUS
     Route: 048
     Dates: start: 20131027
  2. XARELTO [Suspect]
     Indication: EMBOLISM VENOUS
     Route: 048
     Dates: start: 20131014
  3. XARELTO [Suspect]
     Indication: CEREBROVASCULAR ACCIDENT PROPHYLAXIS
     Route: 048
     Dates: start: 20131027
  4. XARELTO [Suspect]
     Indication: CEREBROVASCULAR ACCIDENT PROPHYLAXIS
     Route: 048
     Dates: start: 20131014
  5. XARELTO [Suspect]
     Indication: EMBOLISM
     Route: 048
     Dates: start: 20131027
  6. XARELTO [Suspect]
     Indication: EMBOLISM
     Route: 048
     Dates: start: 20131014
  7. XARELTO [Suspect]
     Indication: ATRIAL FIBRILLATION
     Route: 048
     Dates: start: 20131027
  8. XARELTO [Suspect]
     Indication: ATRIAL FIBRILLATION
     Route: 048
     Dates: start: 20131014
  9. OMEPRAZOLE [Concomitant]
     Route: 065
  10. WARFARIN [Concomitant]
     Indication: EMBOLISM
     Route: 065
  11. WARFARIN [Concomitant]
     Indication: ATRIAL FIBRILLATION
     Route: 065

REACTIONS (1)
  - Peripheral artery thrombosis [Not Recovered/Not Resolved]
